FAERS Safety Report 20068690 (Version 2)
Quarter: 2021Q4

REPORT INFORMATION
  Report Type: Spontaneous
  Country: US (occurrence: US)
  Receive Date: 20211115
  Receipt Date: 20211123
  Transmission Date: 20220303
  Serious: No
  Sender: FDA-Public Use
  Company Number: US-PFIZER INC-2021414898

PATIENT
  Age: 64 Year
  Sex: Female
  Weight: 59.87 kg

DRUGS (2)
  1. GABAPENTIN [Suspect]
     Active Substance: GABAPENTIN
     Dosage: 300 MG, 3X/DAY (3 TIMES DAILY FOR 2 WEEKS )
  2. LORATADINE [Concomitant]
     Active Substance: LORATADINE
     Indication: Seasonal allergy
     Dosage: UNK

REACTIONS (2)
  - Gait inability [Unknown]
  - Disturbance in attention [Unknown]
